FAERS Safety Report 9060441 (Version 1)
Quarter: 2013Q1

REPORT INFORMATION
  Report Type: Spontaneous
  Country: IN (occurrence: IN)
  Receive Date: 20130212
  Receipt Date: 20130212
  Transmission Date: 20140127
  Serious: Yes (Life-Threatening)
  Sender: FDA-Public Use
  Company Number: IN-ASTRAZENECA-2013SE09340

PATIENT
  Age: 58 Year
  Sex: Male
  Weight: 82 kg

DRUGS (7)
  1. BRILINTA [Suspect]
     Route: 048
     Dates: start: 20130124, end: 20130204
  2. TAB. ECOSPRIN [Concomitant]
     Route: 048
     Dates: start: 20130124
  3. TAB. ROZANEL [Concomitant]
     Route: 048
     Dates: start: 20130124
  4. TAB. NIKORAN [Concomitant]
     Route: 048
     Dates: start: 20130124
  5. TAB. BETNLAC [Concomitant]
     Route: 048
     Dates: start: 20130124
  6. TAB. PIOPOD GM2 [Concomitant]
     Dosage: DAILY
     Route: 048
     Dates: start: 20130124
  7. TAB. GLIMISTAR M2 [Concomitant]
     Dosage: DAILY
     Route: 048
     Dates: start: 20130124

REACTIONS (1)
  - Thrombosis in device [Recovered/Resolved]
